FAERS Safety Report 7064876-4 (Version None)
Quarter: 2010Q4

REPORT INFORMATION
  Report Type: 
  Country: None (occurrence: None)
  Receive Date: 20101027
  Receipt Date: 19920121
  Transmission Date: 20110411
  Serious: Yes (Death, Hospitalization)
  Sender: FDA-Public Use
  Company Number: US-ROCHE-920200113001

PATIENT
  Sex: Female
  Weight: 113.4 kg

DRUGS (8)
  1. ROFERON-A [Suspect]
     Indication: CHRONIC HEPATITIS
     Route: 058
     Dates: start: 19910226, end: 19910910
  2. ROFERON-A [Suspect]
     Route: 058
     Dates: start: 19910917, end: 19920106
  3. ROFERON-A [Suspect]
     Route: 058
     Dates: start: 19920107, end: 19920315
  4. ROFERON-A [Suspect]
     Route: 058
     Dates: end: 19920415
  5. SYNTHROID [Concomitant]
     Route: 065
  6. ZANTAC [Concomitant]
     Route: 048
  7. DIABETA [Concomitant]
     Route: 065
  8. TYLENOL W/ CODEINE NO. 3 [Concomitant]
     Route: 048

REACTIONS (2)
  - DEATH [None]
  - NEPHROLITHIASIS [None]
